FAERS Safety Report 7749097-1 (Version None)
Quarter: 2011Q3

REPORT INFORMATION
  Report Type: 
  Country: None (occurrence: None)
  Receive Date: 20110914
  Receipt Date: 20110909
  Transmission Date: 20111222
  Serious: Yes (Death, Hospitalization)
  Sender: FDA-Public Use
  Company Number: US-AMGEN-USASP2011038181

PATIENT
  Age: 83 Year
  Sex: Male

DRUGS (12)
  1. NPLATE [Suspect]
     Indication: IDIOPATHIC THROMBOCYTOPENIC PURPURA
     Dates: start: 20110722
  2. DUONEB [Concomitant]
  3. SYNTHROID [Concomitant]
  4. LASIX [Concomitant]
  5. ARICEPT [Concomitant]
  6. HYTRIN [Concomitant]
  7. CORTICOSTEROIDS [Concomitant]
     Indication: IDIOPATHIC THROMBOCYTOPENIC PURPURA
     Dosage: UNK
     Dates: start: 20110718
  8. COUMADIN [Concomitant]
  9. CRESTOR [Concomitant]
  10. SEROQUEL [Concomitant]
  11. LOPRESSOR [Concomitant]
  12. ATIVAN [Concomitant]

REACTIONS (3)
  - SEPSIS [None]
  - PNEUMONIA [None]
  - RESPIRATORY FAILURE [None]
